FAERS Safety Report 7132591-4 (Version None)
Quarter: 2010Q4

REPORT INFORMATION
  Report Type: 
  Country: None (occurrence: None)
  Receive Date: 20101130
  Receipt Date: 20101130
  Transmission Date: 20110411
  Serious: Yes (Hospitalization)
  Sender: FDA-Public Use
  Company Number: None

PATIENT
  Age: 78 Year
  Sex: Male
  Weight: 69 kg

DRUGS (1)
  1. ENOXAPARIN SODIUM [Suspect]
     Indication: HAEMATOMA
     Dosage: 70 MG BID SQ
     Route: 058
     Dates: start: 20101115, end: 20101121

REACTIONS (4)
  - CONTUSION [None]
  - HAEMATOCRIT DECREASED [None]
  - HAEMATOMA [None]
  - HAEMOGLOBIN DECREASED [None]
